FAERS Safety Report 9727195 (Version 1)
Quarter: 2013Q4

REPORT INFORMATION
  Report Type: Spontaneous
  Country: US (occurrence: US)
  Receive Date: 20131203
  Receipt Date: 20131203
  Transmission Date: 20140711
  Serious: No
  Sender: FDA-Public Use
  Company Number: US-BAYER-2013-147403

PATIENT
  Age: 61 Year
  Sex: Female

DRUGS (2)
  1. GADAVIST [Suspect]
     Indication: NUCLEAR MAGNETIC RESONANCE IMAGING BRAIN
     Dosage: UNK UNK, ONCE
     Route: 042
  2. GADAVIST [Suspect]
     Indication: NEOPLASM

REACTIONS (3)
  - Burning sensation [None]
  - Urticaria [None]
  - Pruritus [None]
